FAERS Safety Report 24996842 (Version 2)
Quarter: 2025Q1

REPORT INFORMATION
  Report Type: Spontaneous
  Country: LV (occurrence: LV)
  Receive Date: 20250221
  Receipt Date: 20250307
  Transmission Date: 20250409
  Serious: Yes (Other)
  Sender: NOVARTIS
  Company Number: LV-002147023-NVSC2025LV026319

PATIENT
  Age: 77 Year
  Sex: Female

DRUGS (2)
  1. ALPELISIB [Suspect]
     Active Substance: ALPELISIB
     Indication: Breast cancer metastatic
     Dosage: 150 MG, BID
     Route: 048
     Dates: start: 20250125, end: 20250127
  2. FULVESTRANT [Concomitant]
     Active Substance: FULVESTRANT
     Indication: Product used for unknown indication
     Dosage: 500 MG, QMO (INJECTION)
     Route: 065
     Dates: start: 20250124

REACTIONS (7)
  - Poisoning [Recovering/Resolving]
  - Dizziness [Recovering/Resolving]
  - Nausea [Recovering/Resolving]
  - Rash macular [Recovering/Resolving]
  - Mucosal inflammation [Recovering/Resolving]
  - Trismus [Recovering/Resolving]
  - Prosopagnosia [Recovering/Resolving]

NARRATIVE: CASE EVENT DATE: 20250127
